FAERS Safety Report 12569691 (Version 1)
Quarter: 2016Q3

REPORT INFORMATION
  Report Type: Spontaneous
  Country: US (occurrence: US)
  Receive Date: 20160719
  Receipt Date: 20160719
  Transmission Date: 20161109
  Serious: Yes (Other)
  Sender: FDA-Public Use
  Company Number: US-PFIZER INC-2016335096

PATIENT
  Sex: Female

DRUGS (2)
  1. ROBITUSSIN MUCUS PLUS CHEST CONGESTION [Suspect]
     Active Substance: GUAIFENESIN
     Dosage: UNK
  2. ROBITUSSIN (GUAIFENESIN) [Suspect]
     Active Substance: GUAIFENESIN
     Dosage: UNK

REACTIONS (3)
  - Pneumonia [Unknown]
  - Asthma [Not Recovered/Not Resolved]
  - Diabetes mellitus [Not Recovered/Not Resolved]
